FAERS Safety Report 17564623 (Version 1)
Quarter: 2020Q1

REPORT INFORMATION
  Report Type: Spontaneous
  Country: CN (occurrence: CN)
  Receive Date: 20200320
  Receipt Date: 20200320
  Transmission Date: 20200409
  Serious: Yes (Other)
  Sender: FDA-Public Use
  Company Number: CN-ROCHE-2571115

PATIENT
  Age: 43 Year
  Sex: Female

DRUGS (9)
  1. AVASTIN [Suspect]
     Active Substance: BEVACIZUMAB
     Indication: LUNG NEOPLASM MALIGNANT
     Dosage: ON DAY 1
     Route: 065
     Dates: start: 20180625
  2. AVASTIN [Suspect]
     Active Substance: BEVACIZUMAB
     Indication: METASTASES TO CENTRAL NERVOUS SYSTEM
  3. NEDAPLATIN [Concomitant]
     Active Substance: NEDAPLATIN
     Indication: LUNG NEOPLASM MALIGNANT
     Dosage: ON DAY 1
     Route: 065
     Dates: start: 20180625
  4. NEDAPLATIN [Concomitant]
     Active Substance: NEDAPLATIN
     Indication: METASTASES TO LYMPH NODES
  5. PEMETREXED. [Concomitant]
     Active Substance: PEMETREXED
     Indication: LUNG NEOPLASM MALIGNANT
     Dosage: ON DAY 1
     Route: 065
     Dates: start: 20180625
  6. PEMETREXED. [Concomitant]
     Active Substance: PEMETREXED
     Indication: METASTASES TO LYMPH NODES
  7. PEMETREXED. [Concomitant]
     Active Substance: PEMETREXED
     Indication: METASTASES TO CENTRAL NERVOUS SYSTEM
  8. AVASTIN [Suspect]
     Active Substance: BEVACIZUMAB
     Indication: METASTASES TO LYMPH NODES
  9. NEDAPLATIN [Concomitant]
     Active Substance: NEDAPLATIN
     Indication: METASTASES TO CENTRAL NERVOUS SYSTEM

REACTIONS (2)
  - Gastrointestinal disorder [Recovering/Resolving]
  - Bone marrow failure [Recovering/Resolving]
